FAERS Safety Report 8306189-6 (Version None)
Quarter: 2012Q2

REPORT INFORMATION
  Report Type: 
  Country: None (occurrence: None)
  Receive Date: 20120423
  Receipt Date: 20120417
  Transmission Date: 20120825
  Serious: Yes (Hospitalization)
  Sender: FDA-Public Use
  Company Number: JP-PFIZER INC-2012095354

PATIENT
  Age: 30 Year
  Sex: Male

DRUGS (2)
  1. GARENOXACIN MESILATE [Suspect]
     Indication: INFECTION
     Dosage: UNK
     Route: 048
     Dates: start: 20120411, end: 20120415
  2. ZITHROMAX [Suspect]
     Indication: INFECTION
     Dosage: 2 G, SINGLE
     Route: 048
     Dates: start: 20120411, end: 20120411

REACTIONS (1)
  - LUNG DISORDER [None]
